FAERS Safety Report 5291941-4 (Version None)
Quarter: 2007Q2

REPORT INFORMATION
  Report Type: 
  Country: None (occurrence: None)
  Receive Date: 20070410
  Receipt Date: 20070330
  Transmission Date: 20071010
  Serious: Yes (Hospitalization)
  Sender: FDA-Public Use
  Company Number: JP-AVENTIS-200710053JP

PATIENT
  Age: 39 Year
  Sex: Female
  Weight: 45 kg

DRUGS (2)
  1. ALLEGRA [Suspect]
     Indication: RHINITIS ALLERGIC
     Route: 048
     Dates: start: 20061101, end: 20070104
  2. YUTAN-EN [Suspect]
     Indication: CONSTIPATION
     Route: 048
     Dates: start: 20061201, end: 20070104

REACTIONS (1)
  - STEVENS-JOHNSON SYNDROME [None]
